FAERS Safety Report 6738573-6 (Version None)
Quarter: 2010Q2

REPORT INFORMATION
  Report Type: 
  Country: None (occurrence: None)
  Receive Date: 20100524
  Receipt Date: 20100513
  Transmission Date: 20101027
  Serious: Yes (Other)
  Sender: FDA-Public Use
  Company Number: JP-PFIZER INC-2010061621

PATIENT

DRUGS (1)
  1. XALATAN [Suspect]

REACTIONS (1)
  - HERPES ZOSTER OPHTHALMIC [None]
